FAERS Safety Report 14297310 (Version 6)
Quarter: 2022Q2

REPORT INFORMATION
  Report Type: Spontaneous
  Country: US (occurrence: US)
  Receive Date: 20171218
  Receipt Date: 20220602
  Transmission Date: 20220721
  Serious: Yes (Other)
  Sender: FDA-Public Use
  Company Number: US-PFIZER INC-2017536717

PATIENT
  Age: 66 Year
  Sex: Female
  Weight: 85.73 kg

DRUGS (4)
  1. XELJANZ XR [Suspect]
     Active Substance: TOFACITINIB CITRATE
     Indication: Rheumatoid arthritis
     Dosage: 11 MG, 1X/DAY
     Route: 048
  2. XELJANZ XR [Suspect]
     Active Substance: TOFACITINIB CITRATE
     Dosage: 11 MG, 1X/DAY
     Route: 048
     Dates: start: 20171206
  3. METFORMIN [Concomitant]
     Active Substance: METFORMIN HYDROCHLORIDE
     Indication: Diabetes mellitus
     Dosage: UNK
  4. GLIPIZIDE [Concomitant]
     Active Substance: GLIPIZIDE
     Indication: Diabetes mellitus
     Dosage: UNK

REACTIONS (11)
  - Diabetes mellitus [Unknown]
  - Therapeutic product effect incomplete [Unknown]
  - Oral pain [Recovered/Resolved]
  - Dry mouth [Recovering/Resolving]
  - Chapped lips [Recovered/Resolved]
  - Tongue disorder [Recovered/Resolved]
  - Eating disorder [Recovered/Resolved]
  - Taste disorder [Recovered/Resolved]
  - Pain [Recovering/Resolving]
  - Blood cholesterol abnormal [Unknown]
  - Laboratory test abnormal [Unknown]

NARRATIVE: CASE EVENT DATE: 20170101
